FAERS Safety Report 6055788-3 (Version None)
Quarter: 2009Q1

REPORT INFORMATION
  Report Type: 
  Country: None (occurrence: None)
  Receive Date: 20090126
  Receipt Date: 20090112
  Transmission Date: 20090719
  Serious: Yes (Death, Hospitalization, Other)
  Sender: FDA-Public Use
  Company Number: 55968

PATIENT
  Age: 58 Year
  Sex: Male

DRUGS (1)
  1. METHOTREXATE [Suspect]
     Indication: CENTRAL NERVOUS SYSTEM LYMPHOMA
     Dosage: 2.5G/M2

REACTIONS (6)
  - BONE MARROW FAILURE [None]
  - DIALYSIS [None]
  - DRUG INTERACTION [None]
  - MUCOSAL INFLAMMATION [None]
  - RENAL FAILURE ACUTE [None]
  - SEPSIS [None]
